FAERS Safety Report 20746121 (Version 3)
Quarter: 2022Q2

REPORT INFORMATION
  Report Type: Spontaneous
  Country: JP (occurrence: JP)
  Receive Date: 20220425
  Receipt Date: 20220602
  Transmission Date: 20220721
  Serious: Yes (Hospitalization)
  Sender: FDA-Public Use
  Company Number: JP-GE HEALTHCARE-2022CSU002635

PATIENT
  Age: 73 Year
  Sex: Male
  Weight: 74 kg

DRUGS (6)
  1. MYOVIEW [Suspect]
     Active Substance: TECHNETIUM TC-99M TETROFOSMIN
     Indication: Scan myocardial perfusion
     Dosage: 296 MBQ, SINGLE
     Route: 042
     Dates: start: 20220418, end: 20220418
  2. MYOVIEW [Suspect]
     Active Substance: TECHNETIUM TC-99M TETROFOSMIN
     Indication: Angina pectoris
     Dosage: 740 MBQ, SINGLE
     Route: 042
     Dates: start: 20220418, end: 20220418
  3. TECHNETIUM TC-99M [Concomitant]
     Active Substance: TECHNETIUM TC-99M
     Indication: Scan myocardial perfusion
     Dosage: UNK
     Route: 042
     Dates: start: 20220418, end: 20220418
  4. ADENOSINE TRIPHOSPHATE DISODIUM [Concomitant]
     Active Substance: ADENOSINE TRIPHOSPHATE DISODIUM
     Indication: Scan myocardial perfusion
     Dosage: UNK UNK, SINGLE
     Route: 042
     Dates: start: 20220418, end: 20220418
  5. AMLODIPINE BESYLATE\CANDESARTAN CILEXETIL [Concomitant]
     Active Substance: AMLODIPINE BESYLATE\CANDESARTAN CILEXETIL
     Indication: Hypertension
     Dosage: 1 DF, QD
     Route: 048
  6. AMLODIPINE [Concomitant]
     Active Substance: AMLODIPINE BESYLATE
     Indication: Hypertension
     Dosage: 1 DF, QD
     Route: 048

REACTIONS (1)
  - Anaphylactic shock [Recovered/Resolved]

NARRATIVE: CASE EVENT DATE: 20220418
